FAERS Safety Report 5709719-3 (Version None)
Quarter: 2008Q2

REPORT INFORMATION
  Report Type: 
  Country: None (occurrence: None)
  Receive Date: 20080418
  Receipt Date: 20080407
  Transmission Date: 20081010
  Serious: Yes (Hospitalization)
  Sender: FDA-Public Use
  Company Number: JP-AMGEN-US268031

PATIENT
  Sex: Male

DRUGS (7)
  1. ENBREL [Suspect]
     Indication: RHEUMATOID ARTHRITIS
     Route: 058
     Dates: start: 20071201, end: 20071222
  2. PREDONINE [Suspect]
     Route: 048
     Dates: start: 20070922
  3. ISCOTIN [Concomitant]
     Route: 048
     Dates: start: 20071109
  4. ASPIRIN [Concomitant]
     Route: 048
     Dates: start: 20070922
  5. DEPAKENE [Concomitant]
     Route: 048
     Dates: start: 20070922
  6. ALTAT [Concomitant]
     Route: 048
     Dates: start: 20070922
  7. FAMOTIDINE [Concomitant]
     Route: 048
     Dates: start: 20071006

REACTIONS (3)
  - EXTRADURAL ABSCESS [None]
  - SPINAL COLUMN STENOSIS [None]
  - TUBERCULOSIS [None]
